FAERS Safety Report 7409365-X (Version None)
Quarter: 2011Q2

REPORT INFORMATION
  Report Type: 
  Country: None (occurrence: None)
  Receive Date: 20110412
  Receipt Date: 20110218
  Transmission Date: 20111010
  Serious: Yes (Hospitalization, Other)
  Sender: FDA-Public Use
  Company Number: US-BAYER-201017271NA

PATIENT
  Age: 19 Year
  Sex: Female
  Weight: 68 kg

DRUGS (22)
  1. NAPROSYN [Concomitant]
     Dosage: ON AND OFF THOUGH LIFE
  2. APAP W/ CODEINE [Concomitant]
     Dates: start: 20090801
  3. LOESTRIN 1.5/30 [Concomitant]
  4. IBUPROFEN [Concomitant]
  5. ZITHROMAX [Concomitant]
  6. ERYTHROMYCIN [Concomitant]
     Dates: start: 20090101
  7. PREDNISONE [Concomitant]
     Indication: ASTHMA
     Dates: start: 20080301
  8. FLOVENT HFA [Concomitant]
     Dates: start: 20080301
  9. YASMIN [Suspect]
     Indication: ACNE
  10. FLOVENT [Concomitant]
     Indication: ASTHMA
     Route: 055
     Dates: start: 20080301
  11. CLINDAMYCIN [Concomitant]
     Dates: start: 20081001, end: 20081215
  12. ALEVE [Concomitant]
  13. AMOXICILLIN [Concomitant]
  14. AMOXICILINA CLAV [Concomitant]
     Dates: start: 20080401
  15. YASMIN [Suspect]
     Indication: ORAL CONTRACEPTION
     Route: 048
     Dates: start: 20071101, end: 20080415
  16. ALBUTEROL [Concomitant]
     Indication: ASTHMA
     Route: 055
     Dates: start: 20080301
  17. OMNICEF [Concomitant]
  18. OXYCODONE [Concomitant]
     Dates: start: 20080401
  19. ACETAMINOPHEN [Concomitant]
  20. ASMANEX TWISTHALER [Concomitant]
  21. CIPROXIN [Concomitant]
  22. BENZOYL PEROXIDE [Concomitant]
     Dates: start: 20081201

REACTIONS (8)
  - DEEP VEIN THROMBOSIS [None]
  - PULMONARY EMBOLISM [None]
  - PLEURAL EFFUSION [None]
  - NON-CARDIAC CHEST PAIN [None]
  - HAEMATEMESIS [None]
  - CHEST PAIN [None]
  - DYSPNOEA [None]
  - PULMONARY FIBROSIS [None]
